FAERS Safety Report 21366749 (Version 2)
Quarter: 2022Q4

REPORT INFORMATION
  Report Type: Spontaneous
  Country: US (occurrence: US)
  Receive Date: 20220923
  Receipt Date: 20221026
  Transmission Date: 20230113
  Serious: No
  Sender: FDA-Public Use
  Company Number: US-SA-SAC20220915001013

PATIENT
  Age: 75 Year
  Sex: Female

DRUGS (7)
  1. DUPIXENT [Suspect]
     Active Substance: DUPILUMAB
     Indication: Dermatitis atopic
     Dosage: 300 MG, QOW
     Route: 058
     Dates: start: 202206
  2. DUPIXENT [Suspect]
     Active Substance: DUPILUMAB
     Dosage: 200 MG
     Route: 058
  3. MINIPEN [Concomitant]
     Dosage: UNK, BID
  4. MYRBETRIQ [Concomitant]
     Active Substance: MIRABEGRON
  5. OMEPRAZOLE [Concomitant]
     Active Substance: OMEPRAZOLE
  6. HYDROCORTISONE [Concomitant]
     Active Substance: HYDROCORTISONE
  7. VITAMINS NOS [Concomitant]
     Active Substance: VITAMINS

REACTIONS (14)
  - Increased tendency to bruise [Unknown]
  - Pruritus [Unknown]
  - Tinnitus [Unknown]
  - Weight increased [Unknown]
  - Injection site rash [Unknown]
  - Injection site mass [Unknown]
  - Injection site urticaria [Not Recovered/Not Resolved]
  - Injection site bruising [Not Recovered/Not Resolved]
  - Oral herpes [Not Recovered/Not Resolved]
  - Injection site pruritus [Not Recovered/Not Resolved]
  - Injection site induration [Not Recovered/Not Resolved]
  - Injection site exfoliation [Not Recovered/Not Resolved]
  - Injection site discolouration [Not Recovered/Not Resolved]
  - Dry eye [Not Recovered/Not Resolved]

NARRATIVE: CASE EVENT DATE: 20220101
